FAERS Safety Report 6850566 (Version 5)
Quarter: 2016Q1

REPORT INFORMATION
  Report Type: Report from Study
  Country: JP (occurrence: JP)
  Receive Date: 20081215
  Receipt Date: 20160309
  Transmission Date: 20160526
  Serious: Yes (Death, Disabling)
  Sender: FDA-Public Use
  Company Number: PHHY2008JP31211

PATIENT
  Age: 86 Year
  Sex: Female
  Weight: 33 kg

DRUGS (3)
  1. ICL670A [Suspect]
     Active Substance: DEFERASIROX
     Dosage: 500 MG, QD
     Route: 048
     Dates: start: 20080807, end: 20080817
  2. THYRADIN S [Suspect]
     Active Substance: LEVOTHYROXINE SODIUM
     Indication: PRODUCT USED FOR UNKNOWN INDICATION
     Dosage: 200 UG, QD
     Route: 048
     Dates: start: 20080708, end: 20081120
  3. ICL670A [Suspect]
     Active Substance: DEFERASIROX
     Indication: APLASIA PURE RED CELL
     Dosage: 500 MG, QD
     Route: 048
     Dates: start: 20080708, end: 20080718

REACTIONS (16)
  - Urine output decreased [Fatal]
  - Weight increased [Fatal]
  - Flank pain [Fatal]
  - Muscular weakness [Unknown]
  - Swelling [Fatal]
  - Serum ferritin increased [Unknown]
  - Anaemia [Unknown]
  - Oedema [Fatal]
  - Renal failure [Fatal]
  - Musculoskeletal disorder [Not Recovered/Not Resolved]
  - Connective tissue disorder [Not Recovered/Not Resolved]
  - Blood creatinine increased [Fatal]
  - Infection [Fatal]
  - Myalgia [Unknown]
  - White blood cell count increased [Fatal]
  - Platelet count decreased [Fatal]

NARRATIVE: CASE EVENT DATE: 20080718
